FAERS Safety Report 10869851 (Version 1)
Quarter: 2015Q1

REPORT INFORMATION
  Report Type: Spontaneous
  Country: US (occurrence: US)
  Receive Date: 20150226
  Receipt Date: 20150226
  Transmission Date: 20150721
  Serious: Yes (Hospitalization)
  Sender: FDA-Public Use
  Company Number: US-ROCHE-1527312

PATIENT
  Age: 26 Year
  Sex: Female

DRUGS (6)
  1. XOLAIR [Suspect]
     Active Substance: OMALIZUMAB
     Indication: DERMATITIS ATOPIC
     Dosage: 18 MONTHS
     Route: 065
  2. LORAZEPAM. [Concomitant]
     Active Substance: LORAZEPAM
     Route: 065
  3. ZYRTEC [Concomitant]
     Active Substance: CETIRIZINE HYDROCHLORIDE
     Route: 065
  4. BENADRYL [Concomitant]
     Active Substance: DIPHENHYDRAMINE HYDROCHLORIDE
  5. PROVENTIL [Concomitant]
     Active Substance: ALBUTEROL
     Dosage: AS NEEDED, DOESN^T USE OFTEN
     Route: 065
  6. ZANTAC [Concomitant]
     Active Substance: RANITIDINE HYDROCHLORIDE
     Route: 065

REACTIONS (5)
  - Oral herpes [Not Recovered/Not Resolved]
  - Neuritis [Not Recovered/Not Resolved]
  - Herpes simplex [Not Recovered/Not Resolved]
  - Laryngeal oedema [Unknown]
  - Neuralgia [Unknown]

NARRATIVE: CASE EVENT DATE: 201412
